FAERS Safety Report 16684577 (Version 5)
Quarter: 2020Q3

REPORT INFORMATION
  Report Type: Spontaneous
  Country: US (occurrence: US)
  Receive Date: 20190808
  Receipt Date: 20200902
  Transmission Date: 20201102
  Serious: Yes (Other)
  Sender: FDA-Public Use
  Company Number: US-TEVA-2019-US-1087457

PATIENT
  Age: 60 Year
  Sex: Female
  Weight: 57.15 kg

DRUGS (3)
  1. LORAZEPAM WATSON [Suspect]
     Active Substance: LORAZEPAM
     Indication: ANXIETY
     Route: 065
     Dates: start: 2019, end: 2019
  2. LORAZEPAM 2MG TEVA [Suspect]
     Active Substance: LORAZEPAM
     Indication: ANXIETY
     Route: 065
     Dates: start: 20190427, end: 201908
  3. ATIVAN [Suspect]
     Active Substance: LORAZEPAM
     Indication: ANXIETY
     Dosage: 1?2MG TABLET TAKEN 3 TIMES DAILY
     Route: 065
     Dates: start: 2020

REACTIONS (10)
  - Adverse event [Unknown]
  - Abdominal pain upper [Unknown]
  - Malaise [Unknown]
  - Feeling abnormal [Unknown]
  - Condition aggravated [Unknown]
  - Product odour abnormal [Unknown]
  - Restlessness [Unknown]
  - Product substitution issue [Unknown]
  - Initial insomnia [Unknown]
  - Drug ineffective [Unknown]

NARRATIVE: CASE EVENT DATE: 20190427
